FAERS Safety Report 15160477 (Version 2)
Quarter: 2019Q3

REPORT INFORMATION
  Report Type: Spontaneous
  Country: DE (occurrence: DE)
  Receive Date: 20180718
  Receipt Date: 20190822
  Transmission Date: 20191004
  Serious: Yes (Other)
  Sender: FDA-Public Use
  Company Number: DE-TEVA-2018-DE-924003

PATIENT
  Age: 36 Year
  Sex: Female
  Weight: 73 kg

DRUGS (2)
  1. QUETIAPINE. [Suspect]
     Active Substance: QUETIAPINE
     Indication: BIPOLAR DISORDER
     Dosage: 450 [MG/D ]/ INITIAL DOSAGE 250MG/D, DOSAGE INCREASED TO 450MG/D STEP BY STEP
     Route: 048
     Dates: start: 20170316, end: 20171113
  2. SEROQUELA [Suspect]
     Active Substance: QUETIAPINE
     Indication: BIPOLAR DISORDER
     Dosage: 850 MILLIGRAM DAILY; 850 [MG/D ]
     Route: 048
     Dates: start: 20171114, end: 20171211

REACTIONS (2)
  - Gestational diabetes [Recovered/Resolved]
  - Maternal exposure during pregnancy [Recovered/Resolved]
